FAERS Safety Report 14358559 (Version 5)
Quarter: 2021Q3

REPORT INFORMATION
  Report Type: Spontaneous
  Country: US (occurrence: US)
  Receive Date: 20180105
  Receipt Date: 20210919
  Transmission Date: 20211014
  Serious: No
  Sender: FDA-Public Use
  Company Number: US-SA-2017SA215617

PATIENT
  Age: 58 Year
  Sex: Female
  Weight: 81 kg

DRUGS (3)
  1. DUPIXENT [Suspect]
     Active Substance: DUPILUMAB
     Indication: DERMATITIS ATOPIC
     Dosage: 300 MG,QOW
     Route: 058
     Dates: start: 20170901
  2. DUPIXENT [Suspect]
     Active Substance: DUPILUMAB
     Dosage: 300 MG, QOW
     Route: 058
  3. TYLENOL [Concomitant]
     Active Substance: ACETAMINOPHEN
     Dosage: 325 MG

REACTIONS (12)
  - Asthenopia [Unknown]
  - Rash [Unknown]
  - Ocular discomfort [Unknown]
  - Illness [Unknown]
  - SARS-CoV-2 test positive [Unknown]
  - Injection site swelling [Recovered/Resolved]
  - Urticaria [Unknown]
  - Pharyngitis streptococcal [Unknown]
  - Eye swelling [Unknown]
  - Injection site bruising [Recovering/Resolving]
  - COVID-19 [Unknown]
  - Pruritus [Unknown]

NARRATIVE: CASE EVENT DATE: 201801
